FAERS Safety Report 9701989 (Version 1)
Quarter: 2013Q4

REPORT INFORMATION
  Report Type: Spontaneous
  Country: US (occurrence: US)
  Receive Date: 20131121
  Receipt Date: 20131121
  Transmission Date: 20140711
  Serious: No
  Sender: FDA-Public Use
  Company Number: US-B.I. PHARMACEUTICALS,INC./RIDGEFIELD-2013-BI-36993BP

PATIENT
  Age: 85 Year
  Sex: Male

DRUGS (2)
  1. PRADAXA [Suspect]
     Route: 048
     Dates: start: 2013, end: 2013
  2. HIGH BLOOD PRESSURE MEDICATION [Concomitant]

REACTIONS (1)
  - Lethargy [Unknown]
